FAERS Safety Report 5560879-7 (Version None)
Quarter: 2007Q4

REPORT INFORMATION
  Report Type: 
  Country: None (occurrence: None)
  Receive Date: 20071215
  Receipt Date: 20071129
  Transmission Date: 20080405
  Serious: Yes (Hospitalization)
  Sender: FDA-Public Use
  Company Number: US-ABBOTT-07P-163-0426595-00

PATIENT
  Age: 82 Year
  Sex: Female

DRUGS (2)
  1. HUMIRA [Suspect]
     Indication: DRUG USE FOR UNKNOWN INDICATION
     Dates: end: 20071001
  2. HUMIRA [Suspect]
     Dates: start: 20071105

REACTIONS (4)
  - FALL [None]
  - HAEMATOMA [None]
  - JOINT SWELLING [None]
  - UPPER LIMB FRACTURE [None]
